FAERS Safety Report 23098750 (Version 1)
Quarter: 2023Q4

REPORT INFORMATION
  Report Type: Spontaneous
  Country: US (occurrence: US)
  Receive Date: 20231024
  Receipt Date: 20231024
  Transmission Date: 20240110
  Serious: Yes (Hospitalization)
  Sender: FDA-Public Use
  Company Number: US-ENDO PHARMACEUTICALS INC-2023-005364

PATIENT
  Age: 22 Year
  Sex: Male

DRUGS (1)
  1. KETALAR [Suspect]
     Active Substance: KETAMINE HYDROCHLORIDE
     Indication: Aggression
     Dosage: 100 MILLIGRAM, (THREE SEPARATE DOSES TOTALING 100 MG OVER A TWO HOUR PERIOD)
     Route: 042

REACTIONS (3)
  - Negative pressure pulmonary oedema [Recovered/Resolved]
  - Laryngospasm [Recovered/Resolved]
  - Off label use [Recovered/Resolved]
